FAERS Safety Report 14328783 (Version 2)
Quarter: 2018Q1

REPORT INFORMATION
  Report Type: Report from Study
  Country: US (occurrence: US)
  Receive Date: 20171227
  Receipt Date: 20180302
  Transmission Date: 20180509
  Serious: Yes (Hospitalization, Other)
  Sender: FDA-Public Use
  Company Number: US-KITE, A GILEAD COMPANY-2037827

PATIENT
  Age: 74 Year
  Sex: Male
  Weight: 76.9 kg

DRUGS (40)
  1. FLUDARA [Suspect]
     Active Substance: FLUDARABINE PHOSPHATE
     Route: 042
     Dates: start: 20170118, end: 20170120
  2. CYTOXAN [Suspect]
     Active Substance: CYCLOPHOSPHAMIDE
     Route: 042
     Dates: start: 20170118, end: 20170120
  3. SIMETHICONE (DIMETHICONE) [Concomitant]
     Active Substance: DIMETHICONE
  4. ALBUMIN (HUMAN) [Concomitant]
     Active Substance: ALBUMIN HUMAN
  5. RITUXAN [Concomitant]
     Active Substance: RITUXIMAB
     Dates: start: 201403
  6. ZOLPIDEM [Concomitant]
     Active Substance: ZOLPIDEM\ZOLPIDEM TARTRATE
  7. POLYETHYLENE [Concomitant]
     Active Substance: HIGH DENSITY POLYETHYLENE
  8. ONDANSETRON [Concomitant]
     Active Substance: ONDANSETRON
  9. PROCHLORPERAZINE. [Concomitant]
     Active Substance: PROCHLORPERAZINE
  10. HALOPERIDOL. [Concomitant]
     Active Substance: HALOPERIDOL
  11. LORATADINA + PSEUDOEFEDRINA [Concomitant]
  12. XYLOXILYN [Concomitant]
  13. DEXTROSE. [Concomitant]
     Active Substance: DEXTROSE
  14. LORAZEPAM. [Concomitant]
     Active Substance: LORAZEPAM
  15. LISINOPRIL. [Concomitant]
     Active Substance: LISINOPRIL
  16. MAGNESIUM OXIDE. [Concomitant]
     Active Substance: MAGNESIUM OXIDE
  17. REVLIMID [Concomitant]
     Active Substance: LENALIDOMIDE
     Dates: start: 201403
  18. LAXATIVE (SENNOSIDES A AND B) [Concomitant]
     Active Substance: SENNOSIDES A AND B
  19. SODIUM CHLORIDE. [Concomitant]
     Active Substance: SODIUM CHLORIDE
  20. DIPHENHYDRAMINE. [Concomitant]
     Active Substance: DIPHENHYDRAMINE
  21. LOVENOX [Concomitant]
     Active Substance: ENOXAPARIN SODIUM
  22. YESCARTA [Suspect]
     Active Substance: AXICABTAGENE CILOLEUCEL
     Indication: MANTLE CELL LYMPHOMA
     Route: 042
     Dates: start: 20170123, end: 20170123
  23. FAMOTIDINE. [Concomitant]
     Active Substance: FAMOTIDINE
  24. VALACYCLOVIR [Concomitant]
     Active Substance: VALACYCLOVIR HYDROCHLORIDE
  25. TOCILUZIMAB [Concomitant]
  26. ACETAMINOPHEN. [Concomitant]
     Active Substance: ACETAMINOPHEN
  27. MAGNESIUM SULFATE. [Concomitant]
     Active Substance: MAGNESIUM SULFATE
  28. IBRUTINIB [Concomitant]
     Active Substance: IBRUTINIB
     Dates: start: 201310, end: 201402
  29. MESNA. [Suspect]
     Active Substance: MESNA
     Route: 065
     Dates: start: 20170118, end: 20170120
  30. SENNA AND DOCUSATE SODIUM [Concomitant]
     Active Substance: DOCUSATE SODIUM\SENNOSIDES
  31. ALLOPURINOL. [Concomitant]
     Active Substance: ALLOPURINOL
  32. MEPERIDINE HYDROCHLORIDE. [Concomitant]
     Active Substance: MEPERIDINE HYDROCHLORIDE
  33. FILGRASTIM [Concomitant]
     Active Substance: FILGRASTIM
     Dates: start: 20170121, end: 20170122
  34. THIAMINE. [Concomitant]
     Active Substance: THIAMINE
  35. VANCOMYCIN HYDROCHLORIDE. [Concomitant]
     Active Substance: VANCOMYCIN HYDROCHLORIDE
  36. LIDOCAINE. [Concomitant]
     Active Substance: LIDOCAINE
  37. PANTOPRAZOLE SODIUM. [Concomitant]
     Active Substance: PANTOPRAZOLE SODIUM
     Dates: start: 20170208
  38. TRAMADOL. [Concomitant]
     Active Substance: TRAMADOL
  39. LEVETIRACETAM. [Concomitant]
     Active Substance: LEVETIRACETAM
  40. METHYLPREDNISOLONE SODIUM SUCCINATE. [Concomitant]
     Active Substance: METHYLPREDNISOLONE SODIUM SUCCINATE

REACTIONS (7)
  - Transaminases increased [Recovered/Resolved]
  - Aphasia [Recovered/Resolved]
  - Encephalopathy [Recovered/Resolved]
  - Malnutrition [Recovered/Resolved]
  - Cytokine release syndrome [Recovered/Resolved with Sequelae]
  - Encephalopathy [Recovered/Resolved]
  - Atrial flutter [Recovered/Resolved]

NARRATIVE: CASE EVENT DATE: 20170126
